FAERS Safety Report 5801591-6 (Version None)
Quarter: 2008Q3

REPORT INFORMATION
  Report Type: 
  Country: None (occurrence: None)
  Receive Date: 20080703
  Receipt Date: 20080703
  Transmission Date: 20090109
  Serious: Yes (Other)
  Sender: FDA-Public Use
  Company Number: None

PATIENT
  Age: 54 Year
  Sex: Female
  Weight: 52.1637 kg

DRUGS (1)
  1. BOTULINUM TOXIN 100 UNITS [Suspect]
     Indication: ANAL FISSURE
     Dosage: 5CC 4 TIMES IM
     Route: 030
     Dates: start: 20070628, end: 20070628

REACTIONS (6)
  - COELIAC DISEASE [None]
  - DISCOMFORT [None]
  - FOOD INTOLERANCE [None]
  - FREQUENT BOWEL MOVEMENTS [None]
  - GASTROINTESTINAL DISORDER [None]
  - POST PROCEDURAL COMPLICATION [None]
